FAERS Safety Report 25377164 (Version 2)
Quarter: 2025Q2

REPORT INFORMATION
  Report Type: Spontaneous
  Country: US (occurrence: US)
  Receive Date: 20250530
  Receipt Date: 20250618
  Transmission Date: 20250716
  Serious: Yes (Other)
  Sender: NOVO NORDISK
  Company Number: US-NOVOPROD-1439849

PATIENT
  Age: 60 Year
  Sex: Female

DRUGS (6)
  1. OZEMPIC [Suspect]
     Active Substance: SEMAGLUTIDE
     Indication: Type 2 diabetes mellitus
     Dosage: 0.25 MG, QW, STARTED 2022 OR 2023
     Route: 058
     Dates: start: 2022
  2. OZEMPIC [Suspect]
     Active Substance: SEMAGLUTIDE
     Indication: Cardiac disorder
     Dosage: 0.5 MG, QW
     Route: 058
  3. OZEMPIC [Suspect]
     Active Substance: SEMAGLUTIDE
     Dosage: 2 MG, QW, DISCONTINUED SEP-2024 OR OCT-2024
     Route: 058
     Dates: end: 2024
  4. OZEMPIC [Suspect]
     Active Substance: SEMAGLUTIDE
     Dosage: 0.25 MG, QW
     Route: 058
     Dates: start: 20250521
  5. TRULICITY [Suspect]
     Active Substance: DULAGLUTIDE
     Indication: Type 2 diabetes mellitus
     Dates: end: 20250514
  6. TRULICITY [Suspect]
     Active Substance: DULAGLUTIDE
     Indication: Cardiac disorder

REACTIONS (6)
  - Myocardial infarction [Unknown]
  - Fall [Recovered/Resolved]
  - Joint injury [Recovered/Resolved]
  - Osteoarthritis [Recovered/Resolved]
  - Weight increased [Unknown]
  - Increased appetite [Recovered/Resolved]

NARRATIVE: CASE EVENT DATE: 20230101
